FAERS Safety Report 15765295 (Version 1)
Quarter: 2018Q4

REPORT INFORMATION
  Report Type: Report from Study
  Country: US (occurrence: US)
  Receive Date: 20181227
  Receipt Date: 20181227
  Transmission Date: 20190205
  Serious: Yes (Other)
  Sender: FDA-Public Use
  Company Number: US-ELI_LILLY_AND_COMPANY-US201812009974

PATIENT

DRUGS (2)
  1. FLOXURIDINE. [Concomitant]
     Active Substance: FLOXURIDINE
     Indication: CHOLANGIOCARCINOMA
     Dosage: 0.12 MG/KG, DAILY
     Route: 065
  2. GEMCITABINE HYDROCHLORIDE. [Suspect]
     Active Substance: GEMCITABINE HYDROCHLORIDE
     Indication: CHOLANGIOCARCINOMA
     Dosage: 1000 MG/M2, CYCLICAL
     Route: 065

REACTIONS (1)
  - Liver function test increased [Unknown]
